FAERS Safety Report 9872204 (Version 1)
Quarter: 2014Q1

REPORT INFORMATION
  Report Type: Spontaneous
  Country: TR (occurrence: TR)
  Receive Date: 20140205
  Receipt Date: 20140205
  Transmission Date: 20141002
  Serious: Yes (Hospitalization)
  Sender: FDA-Public Use
  Company Number: TR-B.I. PHARMACEUTICALS,INC./RIDGEFIELD-2014-BI-04299GD

PATIENT
  Sex: Female

DRUGS (4)
  1. PRAMIPEXOLE [Suspect]
     Indication: PARKINSON^S DISEASE
     Dosage: 4.5 MG
     Dates: start: 2009
  2. LEVODOPA/CARBIDOPA [Suspect]
     Indication: PARKINSON^S DISEASE
     Dosage: 400 MG
  3. LEVODOPA/CARBIDOPA [Suspect]
     Dosage: 1 G
  4. RASAGILINE [Suspect]
     Indication: PARKINSON^S DISEASE
     Dosage: 1 MG
     Dates: start: 2009

REACTIONS (4)
  - Pleurothotonus [Unknown]
  - Dizziness [Unknown]
  - Urinary incontinence [Unknown]
  - Urinary retention [Unknown]
